FAERS Safety Report 18339579 (Version 2)
Quarter: 2020Q4

REPORT INFORMATION
  Report Type: Report from Study
  Country: US (occurrence: US)
  Receive Date: 20201002
  Receipt Date: 20201006
  Transmission Date: 20210113
  Serious: No
  Sender: FDA-Public Use
  Company Number: NVSC2020US263318

PATIENT
  Age: 67 Year
  Sex: Female

DRUGS (1)
  1. COSENTYX [Suspect]
     Active Substance: SECUKINUMAB
     Indication: PSORIASIS
     Dosage: 300 MG, Q4W
     Route: 058

REACTIONS (4)
  - Pruritus [Recovering/Resolving]
  - Product dose omission issue [Recovering/Resolving]
  - Psoriasis [Recovering/Resolving]
  - Product availability issue [Recovering/Resolving]

NARRATIVE: CASE EVENT DATE: 202009
